FAERS Safety Report 17527961 (Version 1)
Quarter: 2020Q1

REPORT INFORMATION
  Report Type: Spontaneous
  Country: GB (occurrence: GB)
  Receive Date: 20200311
  Receipt Date: 20200311
  Transmission Date: 20200409
  Serious: Yes (Other)
  Sender: FDA-Public Use
  Company Number: GB-BAUSCH-BL-2020-006447

PATIENT
  Age: 42 Year
  Sex: Female

DRUGS (5)
  1. PREDNISOLONE. [Suspect]
     Active Substance: PREDNISOLONE
     Indication: ANGIOEDEMA
     Dosage: DISCONTINUED
     Route: 065
     Dates: start: 2017
  2. PREDNISOLONE. [Suspect]
     Active Substance: PREDNISOLONE
     Indication: URTICARIA
     Route: 065
     Dates: start: 201802
  3. PREDNISOLONE. [Suspect]
     Active Substance: PREDNISOLONE
     Indication: DERMATOMYOSITIS
     Route: 048
     Dates: start: 201810
  4. PREDNISOLONE. [Suspect]
     Active Substance: PREDNISOLONE
     Dosage: FOUR COURSES OF ORAL STEROIDS IN THE PRECEDING SIX MONTHS
     Route: 048
     Dates: start: 2018, end: 2019
  5. OMALIZUMAB. [Concomitant]
     Active Substance: OMALIZUMAB
     Indication: DERMATOMYOSITIS

REACTIONS (2)
  - Symptom masked [Recovering/Resolving]
  - Dermatomyositis [Recovering/Resolving]
